FAERS Safety Report 13489424 (Version 1)
Quarter: 2017Q2

REPORT INFORMATION
  Report Type: Spontaneous
  Country: US (occurrence: US)
  Receive Date: 20170427
  Receipt Date: 20170427
  Transmission Date: 20170830
  Serious: No
  Sender: FDA-Public Use
  Company Number: None

PATIENT
  Age: 61 Year
  Sex: Female

DRUGS (2)
  1. SALINE NASAL [Suspect]
     Active Substance: SODIUM CHLORIDE
     Indication: EUSTACHIAN TUBE DYSFUNCTION
     Dosage: QUANTITY:3 OUNCE(S);OTHER ROUTE:NASAL SPRAY?
     Route: 045
     Dates: start: 20170426, end: 20170426
  2. SALINE NASAL [Suspect]
     Active Substance: SODIUM CHLORIDE
     Indication: NASAL CONGESTION
     Dosage: QUANTITY:3 OUNCE(S);OTHER ROUTE:NASAL SPRAY?
     Route: 045
     Dates: start: 20170426, end: 20170426

REACTIONS (2)
  - Product substitution issue [None]
  - Nasal discomfort [None]

NARRATIVE: CASE EVENT DATE: 20170426
